FAERS Safety Report 9616797 (Version 1)
Quarter: 2013Q4

REPORT INFORMATION
  Report Type: Spontaneous
  Country: GB (occurrence: GB)
  Receive Date: 20131011
  Receipt Date: 20131011
  Transmission Date: 20140711
  Serious: Yes (Hospitalization, Other)
  Sender: FDA-Public Use
  Company Number: GB-WATSON-2013-17566

PATIENT
  Age: 78 Year
  Sex: Male

DRUGS (3)
  1. RIFAMPICIN (UNKNOWN) [Suspect]
     Indication: ENDOCARDITIS
     Dosage: UNK
     Route: 065
  2. VANCOMYCIN (UNKNOWN) [Suspect]
     Indication: ENDOCARDITIS
     Dosage: UNK
     Route: 065
  3. ASPIRIN [Concomitant]
     Indication: PRODUCT USED FOR UNKNOWN INDICATION
     Dosage: UNK
     Route: 065

REACTIONS (2)
  - Vitamin K deficiency [Recovered/Resolved]
  - Anaemia [Recovered/Resolved]
